FAERS Safety Report 4879703-0 (Version None)
Quarter: 2006Q1

REPORT INFORMATION
  Report Type: 
  Country: None (occurrence: None)
  Receive Date: 20060111
  Receipt Date: 20060104
  Transmission Date: 20060701
  Serious: Yes (Other)
  Sender: FDA-Public Use
  Company Number: 2006002529

PATIENT
  Sex: Male

DRUGS (1)
  1. UNISOM [Suspect]
     Indication: SUICIDE ATTEMPT
     Dosage: 168 TABLETS ONCE, ORAL
     Route: 048
     Dates: start: 20060104, end: 20060104

REACTIONS (1)
  - SUICIDE ATTEMPT [None]
